FAERS Safety Report 9140716 (Version 1)
Quarter: 2013Q1

REPORT INFORMATION
  Report Type: Spontaneous
  Country: US (occurrence: US)
  Receive Date: 20130305
  Receipt Date: 20130305
  Transmission Date: 20140127
  Serious: No
  Sender: FDA-Public Use
  Company Number: US-009507513-1303USA001750

PATIENT
  Sex: Female

DRUGS (2)
  1. AFRIN NO DRIP EXTRA MOISTURIZING NASAL SPRAY [Suspect]
     Indication: RHINORRHOEA
     Dosage: UNK, UNKNOWN
     Route: 045
  2. AFRIN NO DRIP EXTRA MOISTURIZING NASAL SPRAY [Suspect]
     Indication: SINUS HEADACHE

REACTIONS (1)
  - Drug effect decreased [Unknown]
